FAERS Safety Report 7545280-9 (Version None)
Quarter: 2011Q2

REPORT INFORMATION
  Report Type: 
  Country: None (occurrence: None)
  Receive Date: 20110607
  Receipt Date: 20110527
  Transmission Date: 20111010
  Serious: No
  Sender: FDA-Public Use
  Company Number: 2011SP001035

PATIENT
  Age: 28 Year
  Sex: Female
  Weight: 77.1 kg

DRUGS (7)
  1. OMNARIS [Suspect]
     Indication: SEASONAL ALLERGY
     Dosage: 100 UG;BID;NASAL
     Route: 045
     Dates: start: 20100101, end: 20100328
  2. OMNARIS [Suspect]
     Indication: MULTIPLE ALLERGIES
     Dosage: 100 UG;BID;NASAL
     Route: 045
     Dates: start: 20100101, end: 20100328
  3. OMNARIS [Suspect]
     Indication: MYCOTIC ALLERGY
     Dosage: 100 UG;BID;NASAL
     Route: 045
     Dates: start: 20100101, end: 20100328
  4. ALLERGY MEDICATION [Concomitant]
  5. PROTONIX [Concomitant]
  6. IBUPROFEN [Concomitant]
  7. ZOLOFT [Concomitant]

REACTIONS (2)
  - EPISTAXIS [None]
  - NASAL SEPTUM PERFORATION [None]
